FAERS Safety Report 23758435 (Version 2)
Quarter: 2024Q2

REPORT INFORMATION
  Report Type: Spontaneous
  Country: US (occurrence: US)
  Receive Date: 20240418
  Receipt Date: 20240513
  Transmission Date: 20240716
  Serious: Yes (Hospitalization)
  Sender: FDA-Public Use
  Company Number: US-TEVA-VS-3185044

PATIENT
  Age: 28 Year
  Sex: Female

DRUGS (3)
  1. PROGESTERONE [Suspect]
     Active Substance: PROGESTERONE
     Indication: Ovulation induction
     Route: 030
  2. FOLLISTIM [Suspect]
     Active Substance: FOLLITROPIN
     Indication: Ovulation induction
     Route: 030
  3. MENOPUR [Suspect]
     Active Substance: FOLLITROPIN\LUTEINIZING HORMONE
     Indication: Ovulation induction
     Route: 030

REACTIONS (5)
  - Ovarian hyperstimulation syndrome [Recovering/Resolving]
  - Oliguria [Unknown]
  - Tachycardia [Unknown]
  - Hyponatraemia [Unknown]
  - Leukocytosis [Unknown]
